FAERS Safety Report 8597653 (Version 3)
Quarter: 2014Q2

REPORT INFORMATION
  Report Type: Spontaneous
  Country: US (occurrence: US)
  Receive Date: 20120605
  Receipt Date: 20131024
  Transmission Date: 20141212
  Serious: No
  Sender: FDA-Public Use
  Company Number: US-PFIZER INC-2012111146

PATIENT
  Age: 69 Year
  Sex: Male
  Weight: 121 kg

DRUGS (1)
  1. BENZYLPENICILLIN POTASSIUM [Suspect]
     Dosage: UNK

REACTIONS (1)
  - Drug hypersensitivity [Unknown]
